FAERS Safety Report 5108230-0 (Version None)
Quarter: 2006Q3

REPORT INFORMATION
  Report Type: 
  Country: None (occurrence: None)
  Receive Date: 20060915
  Receipt Date: 20060906
  Transmission Date: 20061208
  Serious: Yes (Hospitalization)
  Sender: FDA-Public Use
  Company Number: CERZ-11172

PATIENT
  Age: 37 Year
  Sex: Female
  Weight: 71.6 kg

DRUGS (1)
  1. CEREZYME [Suspect]
     Indication: GAUCHER'S DISEASE
     Dosage: 1600 UNITS QWK IV
     Route: 042
     Dates: start: 19970905

REACTIONS (2)
  - ABDOMINAL PAIN UPPER [None]
  - BILE DUCT STENOSIS [None]
